FAERS Safety Report 25835592 (Version 1)
Quarter: 2025Q3

REPORT INFORMATION
  Report Type: Spontaneous
  Country: US (occurrence: US)
  Receive Date: 20250923
  Receipt Date: 20250923
  Transmission Date: 20251020
  Serious: No
  Sender: ALCON
  Company Number: US-ALCON LABORATORIES-ALC2025US004318

PATIENT
  Sex: Female

DRUGS (4)
  1. ACOLTREMON [Suspect]
     Active Substance: ACOLTREMON
     Indication: Dry eye
     Route: 047
  2. FLUOROMETHOLONE [Concomitant]
     Active Substance: FLUOROMETHOLONE
     Indication: Product used for unknown indication
     Route: 065
  3. GABAPENTIN [Concomitant]
     Active Substance: GABAPENTIN
     Indication: Product used for unknown indication
     Route: 065
  4. HYDROXYCHLOROQUINE [Concomitant]
     Active Substance: HYDROXYCHLOROQUINE
     Indication: Product used for unknown indication
     Route: 065

REACTIONS (1)
  - Dry eye [Unknown]
